FAERS Safety Report 4787817-9 (Version None)
Quarter: 2005Q4

REPORT INFORMATION
  Report Type: 
  Country: None (occurrence: None)
  Receive Date: 20051004
  Receipt Date: 20050929
  Transmission Date: 20060501
  Serious: Yes (Hospitalization, Disabling)
  Sender: FDA-Public Use
  Company Number: US-MERCK-0510USA00217

PATIENT
  Age: 63 Year
  Sex: Male
  Weight: 89 kg

DRUGS (2)
  1. VIOXX [Suspect]
     Indication: ARTHRITIS
     Route: 048
     Dates: start: 20000401, end: 20010401
  2. TYLENOL ARTHRITIS EXTENDED RELIEF [Concomitant]
     Route: 065

REACTIONS (3)
  - ARTHRITIS [None]
  - DEAFNESS [None]
  - MYOCARDIAL INFARCTION [None]
